FAERS Safety Report 10687358 (Version 1)
Quarter: 2014Q4

REPORT INFORMATION
  Report Type: Spontaneous
  Country: US (occurrence: None)
  Receive Date: 20141230
  Receipt Date: 20141230
  Transmission Date: 20150529
  Serious: Yes (Other)
  Sender: FDA-Public Use
  Company Number: INT_00604_2014

PATIENT

DRUGS (3)
  1. SORAFENIB [Suspect]
     Active Substance: SORAFENIB
     Indication: SMALL CELL LUNG CANCER
     Dosage: 200 MG BID, [DAILY STARTING ON DAY 1 CYCLE 1] ORAL
  2. ETOPOSIDE. [Suspect]
     Active Substance: ETOPOSIDE
     Indication: SMALL CELL LUNG CANCER
     Dosage: 120 MG/M2, [ON DAYS 1, 2, 3 EVERY 21 DAYS FOR FOUR CYCLES] INTRAVENOUS (NOT OTHERWISE SPECIFIED)?
  3. CISPLATIN (HQ SPECIALTY) [Suspect]
     Active Substance: CISPLATIN
     Indication: SMALL CELL LUNG CANCER
     Dosage: 60 MG/M2, [DAY 1, EVERY 21 DAYS FOR FOUR CYCLES] INTRAVENOUS (NOT OTHERWISE SPECIFIED)?
     Route: 042

REACTIONS (2)
  - Pneumonitis [None]
  - Toxicity to various agents [None]
